FAERS Safety Report 5169423-X (Version None)
Quarter: 2006Q4

REPORT INFORMATION
  Report Type: 
  Country: None (occurrence: None)
  Receive Date: 20061201
  Receipt Date: 20061120
  Transmission Date: 20070319
  Serious: Yes (Other)
  Sender: FDA-Public Use
  Company Number: 2006143355

PATIENT
  Sex: Female
  Weight: 53 kg

DRUGS (1)
  1. LYRICA [Suspect]
     Dosage: 100 MG (50 MG, 2 IN 1 D)

REACTIONS (5)
  - CONDITION AGGRAVATED [None]
  - CONVULSION [None]
  - GRAND MAL CONVULSION [None]
  - HAEMORRHAGE [None]
  - TONGUE BITING [None]
